FAERS Safety Report 4748865-8 (Version None)
Quarter: 2005Q3

REPORT INFORMATION
  Report Type: 
  Country: None (occurrence: None)
  Receive Date: 20050819
  Receipt Date: 20050810
  Transmission Date: 20060218
  Serious: Yes (Other)
  Sender: FDA-Public Use
  Company Number: MY-GLAXOSMITHKLINE-B0390596A

PATIENT
  Age: 23 Year
  Sex: Male

DRUGS (3)
  1. ZINACEF [Suspect]
     Indication: SYSTEMIC ANTIBACTERIAL THERAPY
     Dosage: 750MG PER DAY
     Route: 042
     Dates: start: 20050805, end: 20050805
  2. TRAMADOL HCL [Concomitant]
     Route: 030
  3. UNSPECIFIED MEDICATION [Concomitant]
     Indication: DRUG USE FOR UNKNOWN INDICATION
     Route: 030

REACTIONS (3)
  - GAZE PALSY [None]
  - RESPIRATORY DISTRESS [None]
  - TONIC CONVULSION [None]
